FAERS Safety Report 9382355 (Version 1)
Quarter: 2013Q3

REPORT INFORMATION
  Report Type: Spontaneous
  Country: US (occurrence: US)
  Receive Date: 20130703
  Receipt Date: 20130703
  Transmission Date: 20140515
  Serious: No
  Sender: FDA-Public Use
  Company Number: US-UPSHER-SMITH LABORATORIES, INC.-12002341

PATIENT
  Age: 54 Year
  Sex: Female

DRUGS (3)
  1. DIVIGEL [Suspect]
     Indication: HOT FLUSH
     Dosage: 0.25 MG, QD
     Route: 061
     Dates: start: 2011, end: 201210
  2. FEMRING [Concomitant]
     Dosage: UNK
  3. LEVOTHYROXINE [Concomitant]
     Indication: HYPOTHYROIDISM
     Dosage: UNK

REACTIONS (6)
  - Product packaging quantity issue [Recovered/Resolved]
  - Weight increased [Recovered/Resolved]
  - Headache [Recovered/Resolved]
  - Dry skin [Not Recovered/Not Resolved]
  - Hot flush [Recovered/Resolved]
  - Night sweats [Recovered/Resolved]
